FAERS Safety Report 5339336-9 (Version None)
Quarter: 2007Q2

REPORT INFORMATION
  Report Type: 
  Country: None (occurrence: None)
  Receive Date: 20070525
  Receipt Date: 20070517
  Transmission Date: 20071010
  Serious: Yes (Hospitalization)
  Sender: FDA-Public Use
  Company Number: 2007SP009609

PATIENT
  Sex: Female

DRUGS (1)
  1. INTEGRILIN [Suspect]

REACTIONS (1)
  - SHOCK HAEMORRHAGIC [None]
